FAERS Safety Report 6532384-2 (Version None)
Quarter: 2010Q1

REPORT INFORMATION
  Report Type: 
  Country: None (occurrence: None)
  Receive Date: 20100108
  Receipt Date: 20091229
  Transmission Date: 20100710
  Serious: Yes (Death, Other)
  Sender: FDA-Public Use
  Company Number: PL-GILEAD-2010-0026261

PATIENT

DRUGS (3)
  1. TRUVADA [Suspect]
     Indication: DRUG USE FOR UNKNOWN INDICATION
     Route: 064
     Dates: start: 20080728
  2. REYATAZ [Concomitant]
     Route: 064
     Dates: start: 20080728
  3. NORVIR [Concomitant]
     Route: 064
     Dates: start: 20080728

REACTIONS (3)
  - DEATH NEONATAL [None]
  - PREMATURE LABOUR [None]
  - TWIN PREGNANCY [None]
